FAERS Safety Report 22212019 (Version 1)
Quarter: 2023Q2

REPORT INFORMATION
  Report Type: Spontaneous
  Country: None (occurrence: US)
  Receive Date: 20230414
  Receipt Date: 20230414
  Transmission Date: 20230722
  Serious: Yes (Hospitalization)
  Sender: FDA-Public Use
  Company Number: US-Central Admixture Pharmacy Services, Inc.-2140344

PATIENT
  Sex: Female

DRUGS (1)
  1. OXYTOCIN [Suspect]
     Active Substance: OXYTOCIN
     Indication: Induced labour
     Route: 041
     Dates: start: 20230321, end: 20230323

REACTIONS (1)
  - Flat affect [Recovered/Resolved]

NARRATIVE: CASE EVENT DATE: 20230321
